FAERS Safety Report 7059899-5 (Version None)
Quarter: 2010Q4

REPORT INFORMATION
  Report Type: 
  Country: None (occurrence: None)
  Receive Date: 20101025
  Receipt Date: 20101019
  Transmission Date: 20110411
  Serious: Yes (Hospitalization)
  Sender: FDA-Public Use
  Company Number: PHHO2010DE15905

PATIENT
  Sex: Female
  Weight: 79 kg

DRUGS (2)
  1. CERTICAN [Suspect]
     Indication: LIVER TRANSPLANT
     Dosage: 1.5 MG - 0 - 1.5 MG
     Route: 048
     Dates: start: 20100413
  2. PROGRAF [Suspect]
     Indication: LIVER TRANSPLANT
     Dosage: 2MG - 0 - 1.5 MG
     Route: 048
     Dates: start: 20100306

REACTIONS (3)
  - ADJUSTMENT DISORDER [None]
  - ANXIETY [None]
  - RESTLESSNESS [None]
